FAERS Safety Report 9336624 (Version 3)
Quarter: 2013Q2

REPORT INFORMATION
  Report Type: Spontaneous
  Country: US (occurrence: US)
  Receive Date: 20130607
  Receipt Date: 20130621
  Transmission Date: 20140414
  Serious: No
  Sender: FDA-Public Use
  Company Number: US-PFIZER INC-2013171531

PATIENT
  Sex: Female

DRUGS (3)
  1. CELEBREX [Suspect]
     Indication: ARTHRALGIA
     Dosage: UNK
     Dates: end: 201304
  2. CELEBREX [Suspect]
     Dosage: UNK, 1X/DAY
     Dates: start: 2005
  3. CELEBREX [Suspect]
     Dosage: UNKNOWN DOSE 2-3 TIMES IN A WEEK

REACTIONS (3)
  - Local swelling [Recovered/Resolved]
  - Arthralgia [Unknown]
  - Drug prescribing error [Unknown]
